FAERS Safety Report 5928500-3 (Version None)
Quarter: 2008Q4

REPORT INFORMATION
  Report Type: 
  Country: None (occurrence: None)
  Receive Date: 20081023
  Receipt Date: 20081009
  Transmission Date: 20090506
  Serious: Yes (Hospitalization)
  Sender: FDA-Public Use
  Company Number: IN-ELI_LILLY_AND_COMPANY-IN200810002784

PATIENT
  Sex: Male
  Weight: 115 kg

DRUGS (4)
  1. BYETTA [Suspect]
     Indication: DIABETES MELLITUS
     Dosage: 5 UG, 2/D
     Route: 058
     Dates: start: 20080826, end: 20080101
  2. BYETTA [Suspect]
     Dosage: UNK, UNKNOWN
     Route: 065
     Dates: start: 20081001, end: 20081009
  3. METFORMIN HYDROCHLORIDE [Concomitant]
     Dosage: UNK, UNKNOWN
     Route: 048
  4. ANTIHYPERTENSIVES [Concomitant]
     Dosage: UNK, UNKNOWN
     Route: 048

REACTIONS (2)
  - POST PROCEDURAL COMPLICATION [None]
  - RESTLESSNESS [None]
